FAERS Safety Report 8845032 (Version 1)
Quarter: 2012Q4

REPORT INFORMATION
  Report Type: 
  Country: JP (occurrence: JP)
  Receive Date: 20121017
  Receipt Date: 20121017
  Transmission Date: 20130627
  Serious: Yes (Disabling, Other)
  Sender: FDA-Public Use
  Company Number: JP-ELI_LILLY_AND_COMPANY-JP201209000608

PATIENT
  Age: 75 Year
  Sex: Female
  Weight: 54 kg

DRUGS (3)
  1. GEMZAR [Suspect]
     Indication: BREAST CANCER STAGE II
     Dosage: 1850 mg, other
     Route: 042
     Dates: start: 20120625, end: 20120813
  2. TAXOL [Concomitant]
     Indication: BREAST CANCER STAGE II
     Dosage: 190 mg, other
     Route: 042
     Dates: start: 20120625, end: 20120813
  3. HERCEPTIN [Concomitant]
     Indication: BREAST CANCER STAGE II
     Dosage: 310 mg, UNK
     Route: 042
     Dates: start: 20090114

REACTIONS (1)
  - Corneal erosion [Recovering/Resolving]
